FAERS Safety Report 20491093 (Version 1)
Quarter: 2022Q1

REPORT INFORMATION
  Report Type: Spontaneous
  Country: FR (occurrence: FR)
  Receive Date: 20220218
  Receipt Date: 20220218
  Transmission Date: 20220423
  Serious: Yes (Other)
  Sender: FDA-Public Use
  Company Number: None

PATIENT
  Age: 43 Year
  Sex: Female

DRUGS (14)
  1. CASPOFUNGIN ACETATE [Suspect]
     Active Substance: CASPOFUNGIN ACETATE
     Indication: Fungal infection
     Dosage: 50 MILLIGRAM, QD, 70 MG THE 1ST DAY THEN 50 MG/D
     Route: 041
     Dates: start: 20210709, end: 20210724
  2. RIVOTRIL [Concomitant]
     Active Substance: CLONAZEPAM
  3. PANTOPRAZOLE [Concomitant]
     Active Substance: PANTOPRAZOLE
  4. ACETAMINOPHEN [Concomitant]
     Active Substance: ACETAMINOPHEN
  5. CYANOCOBALAMIN [Concomitant]
     Active Substance: CYANOCOBALAMIN
  6. ACUPAN [Concomitant]
     Active Substance: NEFOPAM HYDROCHLORIDE
  7. VALACYCLOVIR HYDROCHLORIDE [Concomitant]
     Active Substance: VALACYCLOVIR HYDROCHLORIDE
  8. MAGNESIUM CARBONATE [Concomitant]
     Active Substance: MAGNESIUM CARBONATE
  9. POTASSIUM CHLORIDE [Concomitant]
     Active Substance: POTASSIUM CHLORIDE
  10. CALCIUM PHOSPHATE, DIBASIC, ANHYDROUS\MAGNESIUM GLYCEROPHOSPHATE\PHOSP [Concomitant]
     Active Substance: CALCIUM PHOSPHATE, DIBASIC, ANHYDROUS\MAGNESIUM GLYCEROPHOSPHATE\PHOSPHORIC ACID\SODIUM PHOSPHATE, D
  11. FOLIC ACID [Concomitant]
     Active Substance: FOLIC ACID
  12. LINEZOLID [Concomitant]
     Active Substance: LINEZOLID
     Indication: Bacteraemia
     Dosage: 1200 MILLIGRAM, QD
     Route: 048
     Dates: start: 20210709, end: 20210712
  13. ATOVAQUONE [Concomitant]
     Active Substance: ATOVAQUONE
  14. DESFERAL [Concomitant]
     Active Substance: DEFEROXAMINE MESYLATE

REACTIONS (1)
  - Cutaneous vasculitis [Recovered/Resolved with Sequelae]

NARRATIVE: CASE EVENT DATE: 20210712
